FAERS Safety Report 6065018-4 (Version None)
Quarter: 2009Q1

REPORT INFORMATION
  Report Type: 
  Country: None (occurrence: None)
  Receive Date: 20090204
  Receipt Date: 20090126
  Transmission Date: 20090719
  Serious: Yes (Hospitalization, Other)
  Sender: FDA-Public Use
  Company Number: NO-AMGEN-UK313789

PATIENT
  Sex: Male

DRUGS (6)
  1. NEULASTA [Suspect]
     Indication: CHEMOTHERAPY
     Route: 058
     Dates: start: 20080512, end: 20080517
  2. OXALIPLATIN [Suspect]
     Route: 042
     Dates: start: 20080515, end: 20080515
  3. DEXAMETHASONE [Suspect]
     Route: 042
     Dates: start: 20080515, end: 20080516
  4. FLUOROURACIL [Concomitant]
     Route: 042
     Dates: start: 20080515, end: 20080516
  5. FOLINIC ACID [Concomitant]
     Route: 042
     Dates: start: 20080515, end: 20080516
  6. ONDANSETRON HYDROCHLORIDE [Concomitant]
     Route: 042
     Dates: start: 20080515, end: 20080518

REACTIONS (3)
  - CHEST PAIN [None]
  - DYSPNOEA [None]
  - PULMONARY EMBOLISM [None]
